FAERS Safety Report 4830042-3 (Version None)
Quarter: 2005Q4

REPORT INFORMATION
  Report Type: 
  Country: None (occurrence: None)
  Receive Date: 20051117
  Receipt Date: 20051107
  Transmission Date: 20060501
  Serious: Yes (Hospitalization)
  Sender: FDA-Public Use
  Company Number: FR-AVENTIS-200513658FR

PATIENT
  Age: 31 Year
  Sex: Female
  Weight: 60 kg

DRUGS (5)
  1. RIFADIN [Suspect]
     Indication: INFECTION PROPHYLAXIS
     Route: 048
     Dates: start: 20050116, end: 20050116
  2. RIFADIN [Suspect]
     Route: 048
     Dates: start: 20050117, end: 20050117
  3. RIFADIN [Suspect]
     Route: 048
     Dates: start: 20050118, end: 20050118
  4. SALBUMOL [Concomitant]
     Indication: UTERINE CONTRACTIONS DURING PREGNANCY
     Route: 048
     Dates: start: 20050629, end: 20050826
  5. SALBUMOL [Concomitant]
     Route: 054
     Dates: start: 20050629, end: 20050826

REACTIONS (4)
  - ANAEMIA [None]
  - POSTPARTUM HAEMORRHAGE [None]
  - PREGNANCY [None]
  - UTERINE CONTRACTIONS DURING PREGNANCY [None]
